FAERS Safety Report 6437604-0 (Version None)
Quarter: 2009Q4

REPORT INFORMATION
  Report Type: 
  Country: None (occurrence: None)
  Receive Date: 20091109
  Receipt Date: 20091030
  Transmission Date: 20100525
  Serious: Yes (Death)
  Sender: FDA-Public Use
  Company Number: 2009SP034117

PATIENT
  Age: 72 Year
  Sex: Female

DRUGS (15)
  1. MIRTAZAPINE [Suspect]
     Indication: DEPRESSION
     Dosage: 15 MG;QD;PO;  ONCE
     Route: 048
     Dates: start: 20091022, end: 20091022
  2. MIRTAZAPINE [Suspect]
     Indication: DEPRESSION
     Dosage: 15 MG;QD;PO;  ONCE
     Route: 048
     Dates: start: 20091013, end: 20091023
  3. BROTIZOLAM (BROTIZOLAM) [Suspect]
     Indication: DRUG USE FOR UNKNOWN INDICATION
     Dosage: 0.25 MG;QD;PO; 0.5 MG;QD;PO;  ONCE
     Route: 048
     Dates: end: 20091012
  4. BROTIZOLAM (BROTIZOLAM) [Suspect]
     Indication: DRUG USE FOR UNKNOWN INDICATION
     Dosage: 0.25 MG;QD;PO; 0.5 MG;QD;PO;  ONCE
     Route: 048
     Dates: start: 20091022, end: 20091022
  5. BROTIZOLAM (BROTIZOLAM) [Suspect]
     Indication: DRUG USE FOR UNKNOWN INDICATION
     Dosage: 0.25 MG;QD;PO; 0.5 MG;QD;PO;  ONCE
     Route: 048
     Dates: start: 20091013, end: 20091023
  6. MILNACIPRAN HYDROCHLORIDE (MILNACIPRAN HYDROCHLORIDE) [Suspect]
     Indication: DRUG USE FOR UNKNOWN INDICATION
     Dosage: 45 MG;QD;PO;  ONCE
     Route: 048
     Dates: start: 20091022, end: 20091022
  7. MILNACIPRAN HYDROCHLORIDE (MILNACIPRAN HYDROCHLORIDE) [Suspect]
     Indication: DRUG USE FOR UNKNOWN INDICATION
     Dosage: 45 MG;QD;PO;  ONCE
     Route: 048
     Dates: end: 20091023
  8. NITRAZEPAM [Suspect]
     Indication: DRUG USE FOR UNKNOWN INDICATION
     Dosage: 2 MG;QD;PO; ONCE
     Route: 048
     Dates: start: 20091022, end: 20091022
  9. NITRAZEPAM [Suspect]
     Indication: DRUG USE FOR UNKNOWN INDICATION
     Dosage: 2 MG;QD;PO; ONCE
     Route: 048
     Dates: end: 20091023
  10. SULPRIDE (LEVOSULPIRIDE) [Suspect]
     Indication: DRUG USE FOR UNKNOWN INDICATION
     Dosage: 150 MG;QD;PO; ONCE
     Route: 048
     Dates: start: 20091022, end: 20091022
  11. SULPRIDE (LEVOSULPIRIDE) [Suspect]
     Indication: DRUG USE FOR UNKNOWN INDICATION
     Dosage: 150 MG;QD;PO; ONCE
     Route: 048
     Dates: end: 20091023
  12. ALPRAZOLAM [Suspect]
     Indication: DRUG USE FOR UNKNOWN INDICATION
     Dosage: 1.2 MG;QD;PO;  ONCE
     Route: 048
     Dates: start: 20091022, end: 20091022
  13. ALPRAZOLAM [Suspect]
     Indication: DRUG USE FOR UNKNOWN INDICATION
     Dosage: 1.2 MG;QD;PO;  ONCE
     Route: 048
     Dates: end: 20091023
  14. FLUNITRAZEPAM [Concomitant]
  15. TRIAZOLAM [Concomitant]

REACTIONS (3)
  - DYSPNOEA [None]
  - HYPOPHAGIA [None]
  - OVERDOSE [None]
